FAERS Safety Report 9789929 (Version 1)
Quarter: 2013Q4

REPORT INFORMATION
  Report Type: Spontaneous
  Country: IT (occurrence: None)
  Receive Date: 20131227
  Receipt Date: 20131227
  Transmission Date: 20140711
  Serious: Yes (Other)
  Sender: FDA-Public Use
  Company Number: AUR-APL-2013-10667

PATIENT
  Age: 90 Year
  Sex: Male

DRUGS (8)
  1. SERTRALINE [Suspect]
     Indication: PRODUCT USED FOR UNKNOWN INDICATION
     Route: 048
     Dates: start: 20131111, end: 20131120
  2. SERENASE (MEPROBAMATE) [Concomitant]
  3. DIURESIX (TORASEMIDE) [Concomitant]
  4. LANOXIN (DIGOXIN) [Concomitant]
  5. COUMADIN (WARFARIN SODIUM0 [Concomitant]
  6. DILTIAZEM HYDROCHLORIDE (DILTIAZEM HYDROCHLORIDE) [Concomitant]
  7. POTASSIO CANREONATE (POTASSIUM CANRENOATE) [Concomitant]
  8. REBOXETINE METANSULPHONATE (REBOXETINE) [Concomitant]

REACTIONS (2)
  - Hallucination, visual [None]
  - Disorientation [None]
